FAERS Safety Report 8586120-9 (Version None)
Quarter: 2012Q3

REPORT INFORMATION
  Report Type: 
  Country: None (occurrence: None)
  Receive Date: 20120730
  Receipt Date: 20120717
  Transmission Date: 20120928
  Serious: Yes (Hospitalization, Other)
  Sender: FDA-Public Use
  Company Number: 6050444

PATIENT
  Age: 59 Year
  Sex: Female

DRUGS (8)
  1. MEDIATOR (BENFLUOREX HYDROCHLORIDE) (150 MG, TABLET) (BENFLUOREX HYDRO [Suspect]
     Indication: DIABETES MELLITUS
     Dosage: 3 DF (3 DF, 1 D), ORAL
     Route: 048
     Dates: start: 19980101, end: 20080101
  2. ART 50 (DIACEREIN) (50 MG, CAPSULE) (DIACEREIN) [Suspect]
     Indication: PRODUCT USED FOR UNKNOWN INDICATION
     Dosage: ORAL
     Route: 048
  3. AMITRIPTYLINE HCL [Suspect]
     Indication: PRODUCT USED FOR UNKNOWN INDICATION
  4. LEVOTHYROXINE SODIUM [Suspect]
     Indication: PRODUCT USED FOR UNKNOWN INDICATION
     Dosage: ORAL
     Route: 048
  5. PROZAC [Suspect]
     Indication: DEPRESSION
  6. NOCTRAN (NOCTRAN 10) (10 MG, TABLET) (DIPOTASSIUM CHLORAZEPATE, ACEPRO [Suspect]
     Indication: PRODUCT USED FOR UNKNOWN INDICATION
     Dosage: ORAL
     Route: 048
  7. ATORVASTATIN CALCIUM [Suspect]
     Indication: PRODUCT USED FOR UNKNOWN INDICATION
  8. NEULEPTIL (PERICIAZINE) (PERICIAZINE) [Suspect]
     Indication: PRODUCT USED FOR UNKNOWN INDICATION

REACTIONS (20)
  - QRS AXIS ABNORMAL [None]
  - PULMONARY ARTERIAL HYPERTENSION [None]
  - HEPATOJUGULAR REFLUX [None]
  - LEFT VENTRICULAR FAILURE [None]
  - RHEUMATIC HEART DISEASE [None]
  - MITRAL VALVE INCOMPETENCE [None]
  - DIASTOLIC DYSFUNCTION [None]
  - CARBON MONOXIDE DIFFUSING CAPACITY DECREASED [None]
  - OVERWEIGHT [None]
  - LEFT VENTRICULAR HYPERTROPHY [None]
  - LEFT ATRIAL DILATATION [None]
  - PLEURAL EFFUSION [None]
  - PNEUMONIA [None]
  - MITRAL VALVE STENOSIS [None]
  - AORTIC VALVE INCOMPETENCE [None]
  - RESTRICTIVE PULMONARY DISEASE [None]
  - BRONCHIOLITIS [None]
  - MITRAL VALVE DISEASE [None]
  - RENAL FAILURE ACUTE [None]
  - ASCITES [None]
